FAERS Safety Report 6806298-4 (Version None)
Quarter: 2010Q2

REPORT INFORMATION
  Report Type: 
  Country: None (occurrence: None)
  Receive Date: 20100629
  Receipt Date: 20080108
  Transmission Date: 20101027
  Serious: No
  Sender: FDA-Public Use
  Company Number: US-PFIZER INC-2008004130

PATIENT
  Sex: Female
  Weight: 72.727 kg

DRUGS (5)
  1. XANAX [Suspect]
  2. ZOLOFT [Suspect]
  3. CHANTIX [Suspect]
     Indication: SMOKING CESSATION THERAPY
     Route: 048
     Dates: start: 20071003
  4. CORTICOSTEROID NOS [Suspect]
  5. LOMOTIL [Suspect]

REACTIONS (2)
  - DIZZINESS [None]
  - NAUSEA [None]
